FAERS Safety Report 7124310-2 (Version None)
Quarter: 2010Q4

REPORT INFORMATION
  Report Type: 
  Country: None (occurrence: None)
  Receive Date: 20101126
  Receipt Date: 20101116
  Transmission Date: 20110411
  Serious: Yes (Hospitalization)
  Sender: FDA-Public Use
  Company Number: PHHY2010FR78148

PATIENT
  Sex: Female

DRUGS (7)
  1. TEGRETOL [Suspect]
     Indication: FACIAL NEURALGIA
     Dosage: 200 MG, TID
     Route: 048
     Dates: start: 20100929
  2. TEGRETOL [Suspect]
     Dosage: 200 MG, QID
     Route: 048
     Dates: start: 20101008, end: 20101017
  3. CELIPROLOL [Concomitant]
     Indication: HYPERTENSION
     Dosage: UNK
     Dates: end: 20101017
  4. PRITORPLUS [Concomitant]
     Indication: HYPERTENSION
     Dosage: UNK
     Dates: end: 20101017
  5. ESCITALOPRAM [Concomitant]
     Dosage: 20MG PER DAY
     Route: 048
     Dates: start: 20100907, end: 20101017
  6. XANAX [Concomitant]
     Dosage: 0.25 MG, BID
     Route: 048
     Dates: start: 20100907, end: 20101017
  7. TARDYFERON B(9) [Concomitant]
     Dosage: 1 DF, QD
     Dates: start: 20100901, end: 20101017

REACTIONS (13)
  - ASTHENIA [None]
  - BLOOD AMYLASE INCREASED [None]
  - CHEILITIS [None]
  - DYSPHAGIA [None]
  - GAMMA-GLUTAMYLTRANSFERASE INCREASED [None]
  - INFLAMMATION [None]
  - LUNG DISORDER [None]
  - ODYNOPHAGIA [None]
  - PYREXIA [None]
  - RASH [None]
  - RASH MACULO-PAPULAR [None]
  - STEVENS-JOHNSON SYNDROME [None]
  - ULCERATIVE KERATITIS [None]
